FAERS Safety Report 7014478-0 (Version None)
Quarter: 2010Q3

REPORT INFORMATION
  Report Type: 
  Country: None (occurrence: None)
  Receive Date: 20100927
  Receipt Date: 20100914
  Transmission Date: 20110219
  Serious: Yes (Other)
  Sender: FDA-Public Use
  Company Number: US-ELI_LILLY_AND_COMPANY-US201005007320

PATIENT
  Age: 73 Year
  Sex: Female

DRUGS (2)
  1. FORTEO [Suspect]
  2. PREDNISONE [Concomitant]

REACTIONS (4)
  - DYSPNOEA [None]
  - FLUID RETENTION [None]
  - LUNG DISORDER [None]
  - MALAISE [None]
